FAERS Safety Report 16677792 (Version 1)
Quarter: 2019Q3

REPORT INFORMATION
  Report Type: Report from Study
  Country: US (occurrence: US)
  Receive Date: 20190807
  Receipt Date: 20190807
  Transmission Date: 20191004
  Serious: Yes (Other)
  Sender: FDA-Public Use
  Company Number: US-TAKEDA-2018TUS036797

PATIENT
  Sex: Male

DRUGS (2)
  1. BRIGATINIB [Suspect]
     Active Substance: BRIGATINIB
     Indication: METASTASES TO LUNG
     Dosage: 180 MILLIGRAM, QD
     Route: 048
     Dates: start: 20181117
  2. BRIGATINIB [Suspect]
     Active Substance: BRIGATINIB
     Dosage: 90 MILLIGRAM, QD
     Route: 048

REACTIONS (6)
  - Neoplasm progression [Unknown]
  - Insomnia [Unknown]
  - Diarrhoea [Unknown]
  - Loose tooth [Unknown]
  - Fatigue [Unknown]
  - Gait disturbance [Unknown]
